FAERS Safety Report 15849611 (Version 1)
Quarter: 2019Q1

REPORT INFORMATION
  Report Type: Spontaneous
  Country: US (occurrence: US)
  Receive Date: 20190121
  Receipt Date: 20190121
  Transmission Date: 20190417
  Serious: No
  Sender: FDA-Public Use
  Company Number: US-SANOFI-AVENTIS-2012SA008397

PATIENT
  Age: 65 Year
  Sex: Female

DRUGS (2)
  1. LANTUS [Suspect]
     Active Substance: INSULIN GLARGINE
     Dosage: UNK UNK,QD
     Route: 058
     Dates: start: 20111215
  2. LANTUS [Suspect]
     Active Substance: INSULIN GLARGINE
     Dosage: 32 U, BID

REACTIONS (3)
  - Product storage error [Unknown]
  - Blood glucose increased [Not Recovered/Not Resolved]
  - Inappropriate schedule of product administration [Unknown]
